FAERS Safety Report 6483054-0 (Version None)
Quarter: 2009Q4

REPORT INFORMATION
  Report Type: 
  Country: None (occurrence: None)
  Receive Date: 20091208
  Receipt Date: 20091208
  Transmission Date: 20100525
  Serious: Yes (Other)
  Sender: FDA-Public Use
  Company Number: None

PATIENT
  Sex: Female
  Weight: 80.7403 kg

DRUGS (1)
  1. TRIVORA-21 [Suspect]
     Indication: CONTRACEPTION
     Dosage: 1 TABLET QD PO
     Route: 048
     Dates: start: 20090301, end: 20090807

REACTIONS (5)
  - MENORRHAGIA [None]
  - MENSTRUATION IRREGULAR [None]
  - METRORRHAGIA [None]
  - NAUSEA [None]
  - URINE HUMAN CHORIONIC GONADOTROPIN POSITIVE [None]
